FAERS Safety Report 4599957-8 (Version None)
Quarter: 2005Q1

REPORT INFORMATION
  Report Type: 
  Country: None (occurrence: None)
  Receive Date: 20050304
  Receipt Date: 20050304
  Transmission Date: 20050727
  Serious: Yes (Hospitalization)
  Sender: FDA-Public Use
  Company Number: None

PATIENT
  Age: 32 Year
  Sex: Female

DRUGS (4)
  1. METRONIDAZOLE [Suspect]
     Indication: PROPHYLAXIS
     Route: 042
     Dates: start: 20050117, end: 20050118
  2. METRONIDAZOLE [Suspect]
     Indication: SURGERY
     Route: 042
     Dates: start: 20050117, end: 20050118
  3. GATIFLOXACIN [Suspect]
     Indication: PROPHYLAXIS
     Route: 042
     Dates: start: 20050117, end: 20050118
  4. GATIFLOXACIN [Suspect]
     Indication: SURGERY
     Route: 042
     Dates: start: 20050117, end: 20050118

REACTIONS (4)
  - BACK PAIN [None]
  - PNEUMONIA [None]
  - PYREXIA [None]
  - RASH PAPULAR [None]
